FAERS Safety Report 4641706-9 (Version None)
Quarter: 2005Q2

REPORT INFORMATION
  Report Type: 
  Country: None (occurrence: None)
  Receive Date: 20050421
  Receipt Date: 20050411
  Transmission Date: 20051028
  Serious: Yes (Hospitalization)
  Sender: FDA-Public Use
  Company Number: FR-AMGEN-UK126194

PATIENT
  Sex: Female

DRUGS (3)
  1. NEULASTA [Suspect]
     Indication: CHEMOTHERAPY
     Route: 065
     Dates: start: 20041001
  2. ENDOXAN [Suspect]
     Route: 042
     Dates: start: 20041008, end: 20041028
  3. FARMORUBICIN [Suspect]
     Route: 042
     Dates: start: 20041008, end: 20041008

REACTIONS (2)
  - ANAL ABSCESS [None]
  - INFECTION [None]
